FAERS Safety Report 6588785-X (Version None)
Quarter: 2010Q1

REPORT INFORMATION
  Report Type: 
  Country: None (occurrence: None)
  Receive Date: 20100218
  Receipt Date: 20100209
  Transmission Date: 20100710
  Serious: Yes (Hospitalization)
  Sender: FDA-Public Use
  Company Number: US-JNJFOC-20100205065

PATIENT
  Sex: Male
  Weight: 95.26 kg

DRUGS (2)
  1. FENTANYL-100 [Suspect]
     Indication: PROCEDURAL PAIN
     Route: 062
  2. UNKNOWN MEDICATION [Concomitant]
     Indication: NAUSEA
     Route: 065

REACTIONS (6)
  - CONVULSION [None]
  - CYANOSIS [None]
  - DISORIENTATION [None]
  - HALLUCINATION [None]
  - OFF LABEL USE [None]
  - RESPIRATORY ARREST [None]
